FAERS Safety Report 23798883 (Version 5)
Quarter: 2024Q2

REPORT INFORMATION
  Report Type: Spontaneous
  Country: US (occurrence: US)
  Receive Date: 20240430
  Receipt Date: 20240510
  Transmission Date: 20240716
  Serious: No
  Sender: FDA-Public Use
  Company Number: US-PFIZER INC-202400095441

PATIENT
  Age: 39 Year
  Sex: Female
  Weight: 85.73 kg

DRUGS (2)
  1. GENOTROPIN [Suspect]
     Active Substance: SOMATROPIN
     Indication: Brain injury
     Dosage: 0.3 MG, DAILY (ADMINISTERED NIGHTLY EVERY NIGHT)
     Dates: start: 202310
  2. GENOTROPIN [Suspect]
     Active Substance: SOMATROPIN
     Indication: Adrenal insufficiency

REACTIONS (5)
  - Off label use [Unknown]
  - Poor quality device used [Unknown]
  - Drug dose omission by device [Unknown]
  - Device breakage [Unknown]
  - Device information output issue [Unknown]

NARRATIVE: CASE EVENT DATE: 20240418
